FAERS Safety Report 5309933-5 (Version None)
Quarter: 2007Q2

REPORT INFORMATION
  Report Type: 
  Country: None (occurrence: None)
  Receive Date: 20070427
  Receipt Date: 20070417
  Transmission Date: 20071010
  Serious: Yes (Other)
  Sender: FDA-Public Use
  Company Number: CA-ELI_LILLY_AND_COMPANY-CA200701004947

PATIENT
  Sex: Female

DRUGS (7)
  1. FORTEO [Suspect]
     Indication: OSTEOPOROSIS
     Dosage: 20 UG, DAILY (1/D)
     Route: 058
     Dates: start: 20060417
  2. METOPROLOL SUCCINATE [Concomitant]
     Dosage: 25 MG, UNK
  3. AMLODIPINE [Concomitant]
     Dosage: 5 MG, UNK
  4. FUROSEMIDE [Concomitant]
     Dosage: 60 MG, UNK
  5. MINERAL OIL EMULSION [Concomitant]
  6. NITROGLYCERIN [Concomitant]
     Dosage: UNK, DAILY (1/D)
     Route: 062
  7. VITAMINS [Concomitant]

REACTIONS (5)
  - DRY SKIN [None]
  - ERYTHEMA [None]
  - PRURITUS [None]
  - SKIN CANCER [None]
  - SKIN DISCOLOURATION [None]
